FAERS Safety Report 5761853-8 (Version None)
Quarter: 2008Q2

REPORT INFORMATION
  Report Type: 
  Country: None (occurrence: None)
  Receive Date: 20080606
  Receipt Date: 20080527
  Transmission Date: 20081010
  Serious: Yes (Other)
  Sender: FDA-Public Use
  Company Number: US-PFIZER INC-2008045739

PATIENT
  Sex: Female
  Weight: 61.363 kg

DRUGS (14)
  1. TRIAZOLAM [Suspect]
  2. TRIAZOLAM [Suspect]
  3. AMLODIPINE [Suspect]
     Indication: HYPERTENSION
  4. EFFEXOR [Suspect]
     Indication: DEPRESSION
  5. COZAAR [Concomitant]
  6. ATENOLOL [Concomitant]
  7. LEVOTHYROXINE SODIUM [Concomitant]
     Indication: THYROID DISORDER
  8. METFORMIN HCL [Concomitant]
  9. CENTRUM SILVER [Concomitant]
  10. CITRUCEL [Concomitant]
  11. ASCORBIC ACID [Concomitant]
  12. NASONEX [Concomitant]
  13. ASPIRIN [Concomitant]
  14. DETROL [Concomitant]

REACTIONS (3)
  - COELIAC DISEASE [None]
  - DEPRESSION [None]
  - OEDEMA [None]
